FAERS Safety Report 21772007 (Version 1)
Quarter: 2022Q4

REPORT INFORMATION
  Report Type: Report from Study
  Country: GB (occurrence: GB)
  Receive Date: 20221223
  Receipt Date: 20221223
  Transmission Date: 20230112
  Serious: Yes (Other)
  Sender: FDA-Public Use
  Company Number: GB-GLAXOSMITHKLINE-GB2022EME028133

PATIENT

DRUGS (1)
  1. NIRAPARIB [Suspect]
     Active Substance: NIRAPARIB
     Indication: Neoplasm malignant
     Dosage: UNK
     Dates: start: 202201

REACTIONS (7)
  - Pulmonary fibrosis [Recovering/Resolving]
  - Diarrhoea [Unknown]
  - Chest wall cyst [Unknown]
  - Constipation [Unknown]
  - Discomfort [Recovered/Resolved]
  - Cough [Unknown]
  - Nodule [Recovering/Resolving]

NARRATIVE: CASE EVENT DATE: 20220215
